FAERS Safety Report 4784320-7 (Version None)
Quarter: 2005Q3

REPORT INFORMATION
  Report Type: 
  Country: None (occurrence: None)
  Receive Date: 20050928
  Receipt Date: 20050914
  Transmission Date: 20060218
  Serious: No
  Sender: FDA-Public Use
  Company Number: 217829

PATIENT
  Age: 13 Year
  Sex: Female

DRUGS (1)
  1. SOMATROPIN(SOMATROPIN) POWDER FOR INJECTION [Suspect]
     Indication: TURNER'S SYNDROME

REACTIONS (1)
  - HEPATIC ADENOMA [None]
